FAERS Safety Report 5274515-0 (Version None)
Quarter: 2007Q1

REPORT INFORMATION
  Report Type: 
  Country: None (occurrence: None)
  Receive Date: 20070320
  Receipt Date: 20070303
  Transmission Date: 20070707
  Serious: Yes (Death)
  Sender: FDA-Public Use
  Company Number: 1-14630411

PATIENT
  Age: 1 Month
  Sex: Male
  Weight: 3 kg

DRUGS (7)
  1. BUPHENYL [Suspect]
     Indication: HYPERAMMONAEMIA
     Dosage: SEE IMAGE
     Dates: start: 20070207, end: 20070208
  2. BUPHENYL [Suspect]
     Indication: HYPERAMMONAEMIA
     Dosage: SEE IMAGE
     Dates: start: 20070209, end: 20070213
  3. BUPHENYL [Suspect]
     Indication: HYPERAMMONAEMIA
     Dosage: SEE IMAGE
     Dates: start: 20070215, end: 20070216
  4. AMMONUL (SODIUM PHENYLACETATE/SODIUM BENZOATE) [Concomitant]
  5. CITRULLINE [Concomitant]
  6. PHENOBARBITAL TAB [Concomitant]
  7. UNSPECIFIED ANTIEMETICS [Concomitant]

REACTIONS (21)
  - ABNORMAL BEHAVIOUR [None]
  - AMMONIA INCREASED [None]
  - ANURIA [None]
  - BLOOD SODIUM INCREASED [None]
  - BRAIN DAMAGE [None]
  - COAGULOPATHY [None]
  - GENERALISED OEDEMA [None]
  - HAEMODIALYSIS [None]
  - HEPATIC FAILURE [None]
  - HYDROCEPHALUS [None]
  - INFANTILE SPITTING UP [None]
  - INTERNATIONAL NORMALISED RATIO INCREASED [None]
  - INTRAVENTRICULAR HAEMORRHAGE [None]
  - LOSS OF CONSCIOUSNESS [None]
  - MULTIPLE DRUG OVERDOSE ACCIDENTAL [None]
  - NUCLEAR MAGNETIC RESONANCE IMAGING BRAIN ABNORMAL [None]
  - OSTEOPENIA [None]
  - PROTHROMBIN TIME PROLONGED [None]
  - RESPIRATORY FAILURE [None]
  - WRIST FRACTURE [None]
  - WRONG TECHNIQUE IN DRUG USAGE PROCESS [None]
